FAERS Safety Report 17769002 (Version 2)
Quarter: 2020Q2

REPORT INFORMATION
  Report Type: Spontaneous
  Country: FR (occurrence: FR)
  Receive Date: 20200512
  Receipt Date: 20200512
  Transmission Date: 20200714
  Serious: Yes (Other)
  Sender: FDA-Public Use
  Company Number: FR-TEVA-2020-FR-1233935

PATIENT
  Age: 52 Year
  Sex: Male

DRUGS (2)
  1. COTRIMOXAZOLE [Suspect]
     Active Substance: SULFAMETHOXAZOLE\TRIMETHOPRIM
     Indication: BURKHOLDERIA PSEUDOMALLEI INFECTION
     Dosage: 320/1,600 MG TWICE DAILY
     Route: 048
  2. CEFTAZIDIME. [Concomitant]
     Active Substance: CEFTAZIDIME
     Indication: BURKHOLDERIA PSEUDOMALLEI INFECTION
     Dosage: 2 G 3 TIMES PER DAY FOR 40 DAYS
     Route: 042

REACTIONS (1)
  - Drug reaction with eosinophilia and systemic symptoms [Unknown]
